FAERS Safety Report 19712463 (Version 1)
Quarter: 2021Q3

REPORT INFORMATION
  Report Type: Spontaneous
  Country: US (occurrence: US)
  Receive Date: 20210817
  Receipt Date: 20210817
  Transmission Date: 20211014
  Serious: Yes (Other)
  Sender: FDA-Public Use
  Company Number: NVSC2021US178796

PATIENT
  Age: 65 Year
  Sex: Male

DRUGS (4)
  1. DOCETAXEL. [Suspect]
     Active Substance: DOCETAXEL
     Indication: PROSTATE CANCER METASTATIC
     Dosage: UNK(6 CYCLE)
     Route: 065
     Dates: start: 20210721
  2. ABIRATERONE. [Suspect]
     Active Substance: ABIRATERONE ACETATE
     Indication: PROSTATE CANCER METASTATIC
     Dosage: UNK
     Route: 065
     Dates: start: 202008, end: 202103
  3. LUPRON [Suspect]
     Active Substance: LEUPROLIDE ACETATE
     Indication: PROSTATE CANCER METASTATIC
     Dosage: 22.5 MG
     Route: 065
     Dates: start: 20210610
  4. ENZALUTAMIDE [Suspect]
     Active Substance: ENZALUTAMIDE
     Indication: PROSTATE CANCER METASTATIC
     Dosage: UNK
     Route: 065
     Dates: start: 201902, end: 202008

REACTIONS (7)
  - Prostatic specific antigen increased [Unknown]
  - Metastases to bone [Unknown]
  - Lymphadenopathy [Unknown]
  - Osteosclerosis [Unknown]
  - Back pain [Unknown]
  - Metastases to lymph nodes [Unknown]
  - Bone lesion [Unknown]

NARRATIVE: CASE EVENT DATE: 20201223
